FAERS Safety Report 7943920-3 (Version None)
Quarter: 2011Q4

REPORT INFORMATION
  Report Type: 
  Country: None (occurrence: None)
  Receive Date: 20111128
  Receipt Date: 20111116
  Transmission Date: 20120403
  Serious: Yes (Other)
  Sender: FDA-Public Use
  Company Number: US-ASTRAZENECA-2010SE21648

PATIENT
  Age: 74 Year
  Sex: Female

DRUGS (4)
  1. SYMBICORT [Suspect]
     Dosage: 160/4.5 UG 3 PUFFS TID
     Route: 055
  2. NEXIUM [Suspect]
     Route: 048
  3. LASIX [Concomitant]
  4. SYMBICORT [Suspect]
     Dosage: 160/4.5 UG 1-2 PUFFS TID
     Route: 055

REACTIONS (5)
  - CARDIAC FAILURE CONGESTIVE [None]
  - MALAISE [None]
  - INCORRECT DOSE ADMINISTERED [None]
  - BRONCHITIS CHRONIC [None]
  - DYSPNOEA [None]
